FAERS Safety Report 6602284-8 (Version None)
Quarter: 2010Q1

REPORT INFORMATION
  Report Type: 
  Country: None (occurrence: None)
  Receive Date: 20100225
  Receipt Date: 20100216
  Transmission Date: 20100710
  Serious: Yes (Other)
  Sender: FDA-Public Use
  Company Number: GA-WATSON-2010-01952

PATIENT
  Age: 17 Year
  Sex: Female

DRUGS (4)
  1. FENTANYL CITRATE [Suspect]
     Indication: ANALGESIC THERAPY
     Dosage: 200 U/G, SINGLE
     Route: 042
  2. ISOFLURANE (WATSON LABORATORIES) [Suspect]
     Indication: ANAESTHESIA
     Dosage: 0.5 %, SINGLE
     Route: 042
  3. SUCCINYLCHOLINE CHLORIDE [Suspect]
     Indication: ANAESTHESIA
     Dosage: 1 MG/KG, SINGLE
     Route: 042
  4. THIOPENTAL SODIUM [Suspect]
     Indication: ANAESTHESIA
     Dosage: 5 MG/KG, SINGLE
     Route: 042

REACTIONS (1)
  - TORSADE DE POINTES [None]
